FAERS Safety Report 4334063-9 (Version None)
Quarter: 2004Q2

REPORT INFORMATION
  Report Type: 
  Country: None (occurrence: None)
  Receive Date: 20040402
  Receipt Date: 20040324
  Transmission Date: 20050107
  Serious: Yes (Hospitalization)
  Sender: FDA-Public Use
  Company Number: 2004017675

PATIENT
  Age: 83 Year
  Sex: Male
  Weight: 80 kg

DRUGS (8)
  1. AMLODIPINE [Suspect]
     Indication: ANGINA PECTORIS
     Dosage: 5 MG (DAILY), ORAL
     Route: 048
     Dates: start: 20000824, end: 20040201
  2. ATORVASTATIN (ATORVASTATIN) [Concomitant]
  3. CARVEDILOL [Concomitant]
  4. LOSARTAN (LOSARTAN) [Concomitant]
  5. WARFARIN SODIUM [Concomitant]
  6. NITROGLYCERIN [Concomitant]
  7. FUROSEMIDE [Concomitant]
  8. POTASSIUM (POTASSIUM) [Concomitant]

REACTIONS (2)
  - DIZZINESS [None]
  - ORTHOSTATIC HYPOTENSION [None]
